FAERS Safety Report 24454101 (Version 2)
Quarter: 2024Q4

REPORT INFORMATION
  Report Type: Report from Study
  Country: CL (occurrence: CL)
  Receive Date: 20241017
  Receipt Date: 20241018
  Transmission Date: 20250115
  Serious: No
  Sender: ROCHE
  Company Number: CL-ROCHE-3469624

PATIENT
  Age: 59 Year
  Sex: Female
  Weight: 70.0 kg

DRUGS (5)
  1. RITUXIMAB [Suspect]
     Active Substance: RITUXIMAB
     Indication: Primary progressive multiple sclerosis
     Route: 042
     Dates: start: 2018, end: 202303
  2. PREDNISONE [Concomitant]
     Active Substance: PREDNISONE
  3. BACLOFEN [Concomitant]
     Active Substance: BACLOFEN
  4. ESCITALOPRAM [Concomitant]
     Active Substance: ESCITALOPRAM OXALATE
  5. PREGABALIN [Concomitant]
     Active Substance: PREGABALIN
     Dosage: 50 MG IN THE MORNING AND 75MG AT NIGHT

REACTIONS (2)
  - Off label use [Unknown]
  - No adverse event [Unknown]

NARRATIVE: CASE EVENT DATE: 20180101
